FAERS Safety Report 7825124 (Version 3)
Quarter: 2013Q2

REPORT INFORMATION
  Report Type: Spontaneous
  Country: US (occurrence: None)
  Receive Date: 20101130
  Receipt Date: 20121203
  Transmission Date: 20140414
  Serious: Yes (Hospitalization)
  Sender: FDA-Public Use
  Company Number: 2010SP028286

PATIENT
  Age: 35 Year
  Sex: Female
  Weight: 99.79 kg

DRUGS (3)
  1. NUVARING [Suspect]
     Indication: CONTRACEPTION
     Dates: start: 2007, end: 200811
  2. VITAMINS NOS [Concomitant]
  3. CONTRACEPTION (CONTRACEPTION) [Concomitant]

REACTIONS (2)
  - DEEP VEIN THROMBOSIS [None]
  - MIGRAINE [None]
